FAERS Safety Report 18323491 (Version 1)
Quarter: 2020Q3

REPORT INFORMATION
  Report Type: Spontaneous
  Country: ES (occurrence: ES)
  Receive Date: 20200928
  Receipt Date: 20200928
  Transmission Date: 20201103
  Serious: Yes (Hospitalization)
  Sender: FDA-Public Use
  Company Number: ES-MYLANLABS-2020M1082701

PATIENT
  Age: 42 Year
  Sex: Female

DRUGS (6)
  1. SERTRALINE [Interacting]
     Active Substance: SERTRALINE HYDROCHLORIDE
     Indication: MAJOR DEPRESSION
     Dosage: 50 MILLIGRAM, QD
     Route: 048
     Dates: start: 20170919
  2. EUTIROX [Concomitant]
     Active Substance: LEVOTHYROXINE SODIUM
     Indication: HYPOTHYROIDISM
     Dosage: 75 MICROGRAM, QD
     Dates: start: 20190124
  3. LEPONEX [Suspect]
     Active Substance: CLOZAPINE
     Indication: SCHIZOPHRENIA
     Dosage: 1/2?0?1/2, 40 TABLETS
     Route: 048
     Dates: start: 20191218
  4. DEPAKINE                           /00228501/ [Interacting]
     Active Substance: VALPROIC ACID
     Indication: EPILEPSY
     Dosage: 1?01, 100 TABLETS
     Route: 048
     Dates: start: 20170425, end: 20200610
  5. TRILEPTAL [Interacting]
     Active Substance: OXCARBAZEPINE
     Indication: SCHIZOPHRENIA
     Dosage: 1?0?1, 100 TABLETS
     Route: 048
     Dates: start: 20190321
  6. DEPAKINE                           /00228501/ [Interacting]
     Active Substance: VALPROIC ACID
     Dosage: 750 MILLIGRAM, BID
     Route: 048
     Dates: start: 20200611

REACTIONS (2)
  - Drug interaction [Unknown]
  - Inappropriate antidiuretic hormone secretion [Recovered/Resolved]

NARRATIVE: CASE EVENT DATE: 20200625
